FAERS Safety Report 18480280 (Version 1)
Quarter: 2020Q4

REPORT INFORMATION
  Report Type: Spontaneous
  Country: US (occurrence: US)
  Receive Date: 20201109
  Receipt Date: 20201109
  Transmission Date: 20210114
  Serious: Yes (Hospitalization)
  Sender: FDA-Public Use
  Company Number: None

PATIENT
  Age: 3 Year
  Sex: Female
  Weight: 14.5 kg

DRUGS (6)
  1. DEXAMETHASONE. [Suspect]
     Active Substance: DEXAMETHASONE
     Dates: end: 20201025
  2. VINCRISTINE SULFATE. [Suspect]
     Active Substance: VINCRISTINE SULFATE
     Dates: end: 20201026
  3. ZINECARD [Suspect]
     Active Substance: DEXRAZOXANE HYDROCHLORIDE
     Dates: end: 20201026
  4. DOXORUBICIN HYDROCHLORIDE. [Suspect]
     Active Substance: DOXORUBICIN HYDROCHLORIDE
     Dates: end: 20201026
  5. ONCASPAR [Suspect]
     Active Substance: PEGASPARGASE
     Dates: end: 20201013
  6. GLEEVEC [Suspect]
     Active Substance: IMATINIB MESYLATE
     Dates: end: 20201029

REACTIONS (24)
  - Platelet transfusion [None]
  - Colitis [None]
  - Renal replacement therapy [None]
  - Pulmonary oedema [None]
  - Tachycardia [None]
  - Ascites [None]
  - Multiple organ dysfunction syndrome [None]
  - Diarrhoea haemorrhagic [None]
  - Renal failure [None]
  - Pleural effusion [None]
  - Grunting [None]
  - Pneumothorax [None]
  - Febrile neutropenia [None]
  - Critical illness [None]
  - Pain [None]
  - Gravitational oedema [None]
  - Inadequate analgesia [None]
  - Hypoxia [None]
  - Respiratory failure [None]
  - Pneumonia [None]
  - Atelectasis [None]
  - Tachypnoea [None]
  - Immune system disorder [None]
  - Haemophagocytic lymphohistiocytosis [None]

NARRATIVE: CASE EVENT DATE: 20201102
